FAERS Safety Report 15254974 (Version 1)
Quarter: 2018Q3

REPORT INFORMATION
  Report Type: Spontaneous
  Country: US (occurrence: US)
  Receive Date: 20180808
  Receipt Date: 20180808
  Transmission Date: 20181010
  Serious: Yes (Death, Life-Threatening, Hospitalization)
  Sender: FDA-Public Use
  Company Number: US-MYLANLABS-2018M1059039

PATIENT
  Age: 44 Year
  Sex: Male

DRUGS (1)
  1. NISOLDIPINE. [Suspect]
     Active Substance: NISOLDIPINE
     Indication: PRODUCT USED FOR UNKNOWN INDICATION
     Route: 048

REACTIONS (12)
  - Lethargy [Unknown]
  - Vomiting [Unknown]
  - Depressed level of consciousness [Unknown]
  - Acute respiratory distress syndrome [Fatal]
  - Areflexia [Unknown]
  - Overdose [Fatal]
  - Renal failure [Fatal]
  - Blood pressure diastolic decreased [Recovering/Resolving]
  - Pneumonia aspiration [Unknown]
  - Sinus bradycardia [Unknown]
  - Toxicity to various agents [Fatal]
  - Respiratory disorder [Unknown]
